FAERS Safety Report 6218439-0 (Version None)
Quarter: 2009Q2

REPORT INFORMATION
  Report Type: 
  Country: None (occurrence: None)
  Receive Date: 20090608
  Receipt Date: 20090530
  Transmission Date: 20091009
  Serious: Yes (Hospitalization)
  Sender: FDA-Public Use
  Company Number: A0789116A

PATIENT
  Sex: Male
  Weight: 14.5 kg

DRUGS (1)
  1. SERETIDE [Suspect]
     Indication: ALLERGIC BRONCHITIS
     Dosage: 2PUFF TWICE PER DAY
     Route: 065
     Dates: start: 20070601

REACTIONS (2)
  - BRONCHITIS [None]
  - DRUG ADMINISTRATION ERROR [None]
